FAERS Safety Report 5113279-8 (Version None)
Quarter: 2006Q3

REPORT INFORMATION
  Report Type: 
  Country: None (occurrence: None)
  Receive Date: 20060920
  Receipt Date: 20060913
  Transmission Date: 20061208
  Serious: No
  Sender: FDA-Public Use
  Company Number: 227673

PATIENT
  Age: 65 Year
  Sex: Female
  Weight: 77 kg

DRUGS (9)
  1. ERLOTINIB (ERLOTINIB)TABLET [Suspect]
     Indication: NON-SMALL CELL LUNG CANCER
     Dosage: 150 MG, QD, ORAL
     Route: 048
     Dates: start: 20060405, end: 20060706
  2. AVASTIN [Suspect]
     Indication: NON-SMALL CELL LUNG CANCER
     Dosage: 15 MG/KG, Q3W, INTRAVENOUS
     Route: 042
     Dates: start: 20060405, end: 20060607
  3. PRILOSEC [Concomitant]
  4. CELEXA [Concomitant]
  5. IBUPROFEN [Concomitant]
  6. LEVAQUIN [Concomitant]
  7. OXYCODONE HCL [Concomitant]
  8. AVAPRO [Concomitant]
  9. HYDROCHLOROTHIAZIDE [Concomitant]

REACTIONS (8)
  - BLINDNESS [None]
  - CATARACT [None]
  - CORNEAL DISORDER [None]
  - IRIDOCYCLITIS [None]
  - MULTIPLE SCLEROSIS [None]
  - OPTIC NEURITIS [None]
  - RETINAL HAEMORRHAGE [None]
  - SYSTEMIC LUPUS ERYTHEMATOSUS [None]
